FAERS Safety Report 19020115 (Version 2)
Quarter: 2021Q2

REPORT INFORMATION
  Report Type: Spontaneous
  Country: JP (occurrence: JP)
  Receive Date: 20210317
  Receipt Date: 20210420
  Transmission Date: 20210717
  Serious: Yes (Other)
  Sender: FDA-Public Use
  Company Number: JP-ELI_LILLY_AND_COMPANY-JP202102012287

PATIENT
  Age: 44 Year
  Sex: Female

DRUGS (3)
  1. TRANSAMIN [Concomitant]
     Active Substance: TRANEXAMIC ACID
     Indication: PRODUCTIVE COUGH
     Dosage: 250 MG, TID
     Route: 065
     Dates: start: 20200827
  2. TALTZ [Suspect]
     Active Substance: IXEKIZUMAB
     Indication: PSORIATIC ARTHROPATHY
     Dosage: 80 MG, UNKNOWN
     Route: 058
     Dates: start: 20190201
  3. MUCODYNE [Concomitant]
     Active Substance: CARBOCYSTEINE
     Indication: PRODUCTIVE COUGH
     Dosage: 500 MG, TID
     Route: 065
     Dates: start: 20201106

REACTIONS (1)
  - Pleurisy [Recovered/Resolved]

NARRATIVE: CASE EVENT DATE: 20210221
